FAERS Safety Report 8599398-2 (Version None)
Quarter: 2012Q3

REPORT INFORMATION
  Report Type: 
  Country: None (occurrence: None)
  Receive Date: 20120816
  Receipt Date: 20120814
  Transmission Date: 20120928
  Serious: Yes (Other)
  Sender: FDA-Public Use
  Company Number: PHHY2012NZ069248

PATIENT
  Sex: Female

DRUGS (1)
  1. ZOLEDRONOC ACID [Suspect]
     Dosage: UNK UKN, UNK
     Route: 042
     Dates: start: 20110816

REACTIONS (6)
  - ORAL PAIN [None]
  - MYALGIA [None]
  - AGEUSIA [None]
  - TOOTHACHE [None]
  - BONE PAIN [None]
  - TINNITUS [None]
